FAERS Safety Report 8463474 (Version 4)
Quarter: 2012Q4

REPORT INFORMATION
  Report Type: 
  Country: US (occurrence: US)
  Receive Date: 20120316
  Receipt Date: 20121213
  Transmission Date: 20130627
  Serious: Yes (Other)
  Sender: FDA-Public Use
  Company Number: CHPA2012US004673

PATIENT
  Sex: Female

DRUGS (2)
  1. PRIVATE LABEL STRENGTH UNKNOWN [Suspect]
     Dosage: Unk, Unk
     Route: 062
  2. INSULIN [Concomitant]
     Indication: DIABETES MELLITUS
     Dosage: Unk, Unk

REACTIONS (12)
  - Thermal burn [Recovered/Resolved]
  - Blood glucose increased [Recovered/Resolved]
  - Concomitant disease aggravated [Recovered/Resolved]
  - Scar [Not Recovered/Not Resolved]
  - Infection [Recovered/Resolved]
  - Rash pustular [Recovered/Resolved]
  - Blister [Recovered/Resolved]
  - Fear [Unknown]
  - Crying [Unknown]
  - Anxiety [Unknown]
  - Impaired healing [Unknown]
  - Pain [Recovered/Resolved]
